FAERS Safety Report 6614246-5 (Version None)
Quarter: 2010Q1

REPORT INFORMATION
  Report Type: 
  Country: None (occurrence: None)
  Receive Date: 20100304
  Receipt Date: 20100223
  Transmission Date: 20100710
  Serious: Yes (Hospitalization)
  Sender: FDA-Public Use
  Company Number: KR-JNJFOC-20100101558

PATIENT
  Sex: Male
  Weight: 54 kg

DRUGS (12)
  1. PALIPERIDONE PALMITATE [Suspect]
     Indication: SCHIZOPHRENIA
     Route: 030
  2. PALIPERIDONE PALMITATE [Suspect]
     Route: 030
  3. ACETAMINOPHEN [Concomitant]
     Indication: INJECTION SITE PAIN
     Route: 048
  4. AMOXICILLIN [Concomitant]
     Indication: HAND FRACTURE
     Route: 048
  5. DICLOFENAC SODIUM [Concomitant]
     Indication: HAND FRACTURE
     Route: 048
  6. ALMAGATE [Concomitant]
     Indication: HAND FRACTURE
     Route: 048
  7. DICLOFENAC SODIUM [Concomitant]
     Route: 030
  8. AZELASTINE HCL [Concomitant]
     Indication: ATOPY
     Route: 048
  9. BEPOTASTINE BESILATE [Concomitant]
     Indication: ATOPY
     Route: 048
  10. METHYLPREDNISOLONE ACEPONATE [Concomitant]
     Indication: ATOPY
     Route: 061
  11. DESONIDE [Concomitant]
     Indication: ATOPY
     Route: 061
  12. CICLOPIROX OLAMINE [Concomitant]
     Indication: ATOPY
     Route: 061

REACTIONS (2)
  - AGITATION [None]
  - ANXIETY [None]
